FAERS Safety Report 4327577-9 (Version None)
Quarter: 2004Q1

REPORT INFORMATION
  Report Type: 
  Country: None (occurrence: None)
  Receive Date: 20040325
  Receipt Date: 20040312
  Transmission Date: 20041129
  Serious: Yes (Hospitalization)
  Sender: FDA-Public Use
  Company Number: 04P-056-0253310-00

PATIENT
  Age: 72 Year
  Sex: Female

DRUGS (1)
  1. DEPAKENE [Suspect]
     Indication: GRAND MAL CONVULSION
     Dosage: 1000 MG, 1 IN 1 D, PER ORAL
     Route: 048
     Dates: start: 20021215, end: 20031215

REACTIONS (13)
  - ABASIA [None]
  - ANAL SPHINCTER ATONY [None]
  - BALANCE DISORDER [None]
  - COGNITIVE DISORDER [None]
  - DEMENTIA [None]
  - EUPHORIC MOOD [None]
  - EXTRAPYRAMIDAL DISORDER [None]
  - FALL [None]
  - HYPERTONIA [None]
  - LOGORRHOEA [None]
  - PARKINSONISM [None]
  - PERSONALITY CHANGE DUE TO A GENERAL MEDICAL CONDITION [None]
  - TREMOR [None]
